FAERS Safety Report 7275698-3 (Version None)
Quarter: 2011Q1

REPORT INFORMATION
  Report Type: 
  Country: None (occurrence: None)
  Receive Date: 20110204
  Receipt Date: 20110125
  Transmission Date: 20110831
  Serious: Yes (Hospitalization)
  Sender: FDA-Public Use
  Company Number: NO-PFIZER INC-2011024752

PATIENT
  Age: 52 Year
  Sex: Male

DRUGS (1)
  1. LIPITOR [Suspect]
     Indication: PROPHYLAXIS
     Dosage: 20 MG, 1X/DAY

REACTIONS (1)
  - PANCREATITIS ACUTE [None]
